FAERS Safety Report 4783229-2 (Version None)
Quarter: 2005Q3

REPORT INFORMATION
  Report Type: 
  Country: None (occurrence: None)
  Receive Date: 20050928
  Receipt Date: 20050928
  Transmission Date: 20060218
  Serious: Yes (Life-Threatening)
  Sender: FDA-Public Use
  Company Number: None

PATIENT
  Age: 66 Year
  Sex: Female
  Weight: 89.3586 kg

DRUGS (6)
  1. PROTAMINE [Suspect]
     Indication: HEPARIN NEUTRALISATION THERAPY
     Dosage: 50 MG IV X 1
     Route: 042
     Dates: start: 20050607
  2. MARCAINE [Suspect]
     Indication: INFUSION
     Dosage: X 1
     Dates: start: 20050607
  3. MARCAINE [Suspect]
     Indication: SKIN DISORDER
     Dosage: X 1
     Dates: start: 20050607
  4. TOPROL-XL [Concomitant]
  5. PLAVIX [Concomitant]
  6. NIACIN [Concomitant]

REACTIONS (4)
  - ANGIONEUROTIC OEDEMA [None]
  - BRADYCARDIA [None]
  - HYPOTENSION [None]
  - PROCEDURAL COMPLICATION [None]
